FAERS Safety Report 5017821-7 (Version None)
Quarter: 2006Q2

REPORT INFORMATION
  Report Type: 
  Country: None (occurrence: None)
  Receive Date: 20060605
  Receipt Date: 20060517
  Transmission Date: 20061013
  Serious: Yes (Hospitalization)
  Sender: FDA-Public Use
  Company Number: PHBS2006JP07532

PATIENT
  Age: 74 Year
  Sex: Female

DRUGS (1)
  1. DICLOFENAC SODIUM [Suspect]
     Indication: ARTHRALGIA
     Route: 054

REACTIONS (5)
  - ENDOSCOPY SMALL INTESTINE [None]
  - ILEUS [None]
  - NAUSEA [None]
  - SMALL INTESTINE ULCER [None]
  - VOMITING [None]
